FAERS Safety Report 8986544 (Version 1)
Quarter: 2012Q4

REPORT INFORMATION
  Report Type: 
  Country: US (occurrence: US)
  Receive Date: 20121227
  Receipt Date: 20121227
  Transmission Date: 20130627
  Serious: Yes (Other)
  Sender: FDA-Public Use
  Company Number: US-BAYER-2012-132745

PATIENT
  Age: 51 Year
  Sex: Male

DRUGS (1)
  1. INTERFERON BETA - 1B [Suspect]
     Indication: RELAPSING-REMITTING MULTIPLE SCLEROSIS
     Dosage: 8 miu, QOD
     Route: 058
     Dates: start: 20120305

REACTIONS (6)
  - Syncope [Not Recovered/Not Resolved]
  - Road traffic accident [Not Recovered/Not Resolved]
  - Concussion [Not Recovered/Not Resolved]
  - Bone contusion [Not Recovered/Not Resolved]
  - Neck pain [Not Recovered/Not Resolved]
  - Vision blurred [Not Recovered/Not Resolved]
